FAERS Safety Report 8428504-5 (Version None)
Quarter: 2012Q2

REPORT INFORMATION
  Report Type: 
  Country: None (occurrence: None)
  Receive Date: 20120612
  Receipt Date: 20120606
  Transmission Date: 20120825
  Serious: No
  Sender: FDA-Public Use
  Company Number: US-PFIZER INC-2012136552

PATIENT
  Sex: Female
  Weight: 122 kg

DRUGS (10)
  1. RAPAMUNE [Suspect]
     Indication: LYMPHANGIOLEIOMYOMATOSIS
     Dosage: 2 MG, 1X/DAY
     Route: 048
     Dates: start: 20120516
  2. PROTONIX [Concomitant]
     Dosage: UNK
  3. LASIX [Concomitant]
     Dosage: UNK
  4. POTASSIUM CHLORIDE [Concomitant]
     Dosage: UNK
  5. TOPROL-XL [Concomitant]
     Dosage: UNK
  6. ZOCOR [Concomitant]
     Dosage: UNK
  7. ASPIRIN [Concomitant]
     Dosage: UNK
  8. NASONEX [Concomitant]
     Dosage: UNK
  9. RAPAMUNE [Suspect]
     Indication: PULMONARY HYPERTENSION
     Dosage: 2 MG, 1X/DAY
     Route: 048
     Dates: start: 20120101, end: 20120410
  10. ALBUTEROL [Concomitant]
     Dosage: UNK

REACTIONS (3)
  - DYSPNOEA [None]
  - HEADACHE [None]
  - EAR INFECTION [None]
